FAERS Safety Report 5235439-8 (Version None)
Quarter: 2007Q1

REPORT INFORMATION
  Report Type: 
  Country: None (occurrence: None)
  Receive Date: 20070212
  Receipt Date: 20070202
  Transmission Date: 20070707
  Serious: Yes (Other)
  Sender: FDA-Public Use
  Company Number: 2006UW19080

PATIENT
  Age: 58 Year
  Sex: Male

DRUGS (8)
  1. SYMBICORT PMDI [Suspect]
     Indication: CHRONIC OBSTRUCTIVE PULMONARY DISEASE
     Dosage: 160/4.5 UG X 2 ACTUATIONS BID
     Route: 055
     Dates: start: 20060814, end: 20060926
  2. ALBUTEROL [Suspect]
     Indication: CHRONIC OBSTRUCTIVE PULMONARY DISEASE
     Route: 055
     Dates: start: 20060727, end: 20060814
  3. ALBUTEROL [Suspect]
     Route: 055
     Dates: start: 20060814
  4. ATROVENT [Concomitant]
     Indication: CHRONIC OBSTRUCTIVE PULMONARY DISEASE
     Dates: start: 20060727, end: 20060727
  5. ATROVENT [Concomitant]
     Route: 055
     Dates: start: 20060912
  6. OXYGEN [Concomitant]
     Indication: SLEEP APNOEA SYNDROME
     Route: 055
     Dates: start: 20031211
  7. ACTONEL [Concomitant]
     Indication: OSTEOPOROSIS
     Route: 048
     Dates: start: 20060807
  8. CITRACALTO [Concomitant]
     Indication: OSTEOPOROSIS
     Route: 048
     Dates: start: 20060807

REACTIONS (1)
  - VENTRICULAR TACHYCARDIA [None]
